FAERS Safety Report 11322428 (Version 3)
Quarter: 2015Q4

REPORT INFORMATION
  Report Type: Report from Study
  Country: DE (occurrence: DE)
  Receive Date: 20150730
  Receipt Date: 20151009
  Transmission Date: 20160304
  Serious: Yes (Hospitalization)
  Sender: FDA-Public Use
  Company Number: DE-ASTELLAS-2015US026609

PATIENT
  Sex: Female

DRUGS (2)
  1. ADVANTAN [Concomitant]
     Active Substance: CORTICOSTEROID NOS
     Indication: DERMATITIS ATOPIC
     Dosage: UNK UNK, UNKNOWN FREQ.
     Route: 065
  2. TACROLIMUS. [Suspect]
     Active Substance: TACROLIMUS
     Indication: DERMATITIS ATOPIC
     Dosage: 0.03 %, UNKNOWN FREQ.
     Route: 061
     Dates: start: 20110510

REACTIONS (2)
  - Dermatitis atopic [Unknown]
  - Dermatitis [Unknown]

NARRATIVE: CASE EVENT DATE: 201403
